FAERS Safety Report 8456113-0 (Version None)
Quarter: 2012Q2

REPORT INFORMATION
  Report Type: 
  Country: None (occurrence: None)
  Receive Date: 20120621
  Receipt Date: 20120611
  Transmission Date: 20120825
  Serious: No
  Sender: FDA-Public Use
  Company Number: JP-ROCHE-1070623

PATIENT
  Sex: Female
  Weight: 57 kg

DRUGS (2)
  1. MIRCERA [Suspect]
     Indication: NEPHROGENIC ANAEMIA
     Route: 042
     Dates: start: 20111226, end: 20111227
  2. MIRCERA [Suspect]
     Route: 042
     Dates: start: 20120127

REACTIONS (1)
  - WHITE BLOOD CELL COUNT DECREASED [None]
